FAERS Safety Report 4917807-4 (Version None)
Quarter: 2006Q1

REPORT INFORMATION
  Report Type: 
  Country: None (occurrence: None)
  Receive Date: 20060113
  Receipt Date: 20051017
  Transmission Date: 20060701
  Serious: No
  Sender: FDA-Public Use
  Company Number: 2005SP003560

PATIENT
  Age: 51 Year
  Sex: Female

DRUGS (4)
  1. LUNESTA [Suspect]
     Indication: INSOMNIA
     Dosage: 2 MG; HS; ORAL
     Route: 048
     Dates: start: 20051014, end: 20051017
  2. ADVAIR DISKUS 100/50 [Concomitant]
  3. LEVOXYL [Concomitant]
  4. CYTOMEL [Concomitant]

REACTIONS (6)
  - DIARRHOEA [None]
  - DRUG INEFFECTIVE [None]
  - HEADACHE [None]
  - INSOMNIA [None]
  - NAUSEA [None]
  - SOMNOLENCE [None]
